FAERS Safety Report 13532311 (Version 1)
Quarter: 2017Q2

REPORT INFORMATION
  Report Type: Spontaneous
  Country: RU (occurrence: RU)
  Receive Date: 20170510
  Receipt Date: 20170510
  Transmission Date: 20170830
  Serious: Yes (Death, Other)
  Sender: FDA-Public Use
  Company Number: RU-ELI_LILLY_AND_COMPANY-19177260

PATIENT
  Age: 41 Year
  Sex: Male

DRUGS (4)
  1. OXALIPLATIN. [Concomitant]
     Active Substance: OXALIPLATIN
  2. ERBITUX [Suspect]
     Active Substance: CETUXIMAB
     Indication: RECTAL CANCER
     Dosage: 500 MG, QWK
     Route: 042
     Dates: start: 20120905, end: 20130530
  3. FLUORO URACIL [Concomitant]
     Active Substance: FLUOROURACIL
  4. FOLINIC ACID [Concomitant]
     Active Substance: LEUCOVORIN

REACTIONS (4)
  - Blood bilirubin abnormal [Unknown]
  - Portal hypertension [Unknown]
  - Malignant neoplasm progression [Unknown]
  - Death [Fatal]

NARRATIVE: CASE EVENT DATE: 201305
